FAERS Safety Report 10777937 (Version 1)
Quarter: 2015Q1

REPORT INFORMATION
  Report Type: Spontaneous
  Country: US (occurrence: US)
  Receive Date: 20150209
  Receipt Date: 20150209
  Transmission Date: 20150721
  Serious: No
  Sender: FDA-Public Use
  Company Number: US-AMGEN-USASP2014022998

PATIENT
  Age: 53 Year
  Sex: Female

DRUGS (18)
  1. TAXOL [Concomitant]
     Active Substance: PACLITAXEL
     Dosage: 125 MG, UNK
  2. ADRIAMYCIN [Concomitant]
     Active Substance: DOXORUBICIN HYDROCHLORIDE
     Dosage: 60 MG, UNK
  3. CYTOXAN [Concomitant]
     Active Substance: CYCLOPHOSPHAMIDE
     Dosage: 600 MG, UNK
  4. PEPCID AC [Concomitant]
     Active Substance: FAMOTIDINE
     Dosage: 10 MG, UNK
     Route: 048
  5. HERCEPTIN [Suspect]
     Active Substance: TRASTUZUMAB
     Dosage: 120 MG, UNK
     Route: 042
     Dates: start: 20111111
  6. TYLENOL [Concomitant]
     Active Substance: ACETAMINOPHEN
     Dosage: UNK, PRN
  7. HERCEPTIN [Suspect]
     Active Substance: TRASTUZUMAB
     Indication: BREAST CANCER
     Dosage: 250 MG, UNK
     Route: 042
     Dates: start: 20110930
  8. HERCEPTIN [Suspect]
     Active Substance: TRASTUZUMAB
     Dosage: 120 MG, UNK
     Route: 042
     Dates: start: 20111028
  9. NEULASTA [Suspect]
     Active Substance: PEGFILGRASTIM
     Indication: PRODUCT USED FOR UNKNOWN INDICATION
     Dosage: 6 MG, UNK
     Route: 060
  10. HERCEPTIN [Suspect]
     Active Substance: TRASTUZUMAB
     Dosage: 120 MG, UNK
     Route: 042
     Dates: start: 20111021
  11. HERCEPTIN [Suspect]
     Active Substance: TRASTUZUMAB
     Dosage: 120 MG, UNK
     Route: 042
     Dates: start: 20111118
  12. COMPAZINE [Concomitant]
     Active Substance: PROCHLORPERAZINE MALEATE
     Dosage: Q 4-6 HRS, PRN (10MG)
     Route: 048
  13. HERCEPTIN [Suspect]
     Active Substance: TRASTUZUMAB
     Dosage: 120 MG, UNK
     Route: 042
     Dates: start: 20111007
  14. HERCEPTIN [Suspect]
     Active Substance: TRASTUZUMAB
     Dosage: 370 MG, UNK
     Route: 042
     Dates: start: 20111216
  15. TAMOXIFEN CITRATE. [Concomitant]
     Active Substance: TAMOXIFEN CITRATE
     Dosage: 20 MG, DAILY
     Route: 048
  16. HERCEPTIN [Suspect]
     Active Substance: TRASTUZUMAB
     Dosage: 120 MG, UNK
     Route: 042
     Dates: start: 20111014
  17. HERCEPTIN [Suspect]
     Active Substance: TRASTUZUMAB
     Dosage: 120 MG, UNK
     Route: 042
     Dates: start: 20111104
  18. HERCEPTIN [Suspect]
     Active Substance: TRASTUZUMAB
     Dosage: 370 MG, UNK
     Route: 042
     Dates: start: 20120106

REACTIONS (20)
  - Cough [Unknown]
  - Neutropenia [Unknown]
  - Lacrimation increased [Unknown]
  - Headache [Unknown]
  - Photophobia [Unknown]
  - Dizziness [Unknown]
  - Paraesthesia [Unknown]
  - Rhinitis [Unknown]
  - Epistaxis [Unknown]
  - Sensory loss [Unknown]
  - Dry mouth [Unknown]
  - Asthenia [Unknown]
  - Peripheral swelling [Unknown]
  - Fatigue [Unknown]
  - Pain in extremity [Unknown]
  - Neuropathy peripheral [Unknown]
  - Dyspnoea [Unknown]
  - Rhinorrhoea [Unknown]
  - Onychomadesis [Unknown]
  - Hypoaesthesia [Unknown]
